FAERS Safety Report 12693744 (Version 4)
Quarter: 2016Q3

REPORT INFORMATION
  Report Type: Spontaneous
  Country: US (occurrence: US)
  Receive Date: 20160829
  Receipt Date: 20160907
  Transmission Date: 20161109
  Serious: No
  Sender: FDA-Public Use
  Company Number: US-PFIZER INC-2016377884

PATIENT
  Age: 58 Year
  Sex: Male

DRUGS (2)
  1. NITROSTAT [Suspect]
     Active Substance: NITROGLYCERIN
     Indication: CARDIAC DISORDER
     Dosage: 0.4 MG, AS NEEDED
     Route: 048
  2. NITROSTAT [Suspect]
     Active Substance: NITROGLYCERIN
     Indication: ANGINA PECTORIS
     Dosage: UNK (0.4)
     Route: 060

REACTIONS (3)
  - Product taste abnormal [Unknown]
  - Drug ineffective [Unknown]
  - Product physical issue [Unknown]

NARRATIVE: CASE EVENT DATE: 201606
